FAERS Safety Report 8817733 (Version 1)
Quarter: 2012Q4

REPORT INFORMATION
  Report Type: 
  Country: US (occurrence: US)
  Receive Date: 20121001
  Receipt Date: 20121001
  Transmission Date: 20130627
  Serious: Yes (Other)
  Sender: FDA-Public Use
  Company Number: PHEH2012US018735

PATIENT
  Sex: Female

DRUGS (8)
  1. RECLAST [Suspect]
     Dosage: UNK
  2. DIOVAN [Suspect]
     Dosage: 80 mg, BID
  3. LISINOPRIL [Suspect]
     Dosage: UNK
  4. SYMBICORT [Concomitant]
     Dosage: UNK
  5. CYPROHEPTADINE [Concomitant]
     Dosage: UNK
  6. VITAMIN D [Concomitant]
     Dosage: UNK
  7. VITAMIN E [Concomitant]
     Dosage: UNK
  8. CALCIUM [Concomitant]
     Dosage: UNK

REACTIONS (3)
  - Asthma [Unknown]
  - Cough [Unknown]
  - Tooth loss [Unknown]
